FAERS Safety Report 15135355 (Version 1)
Quarter: 2018Q3

REPORT INFORMATION
  Report Type: Spontaneous
  Country: US (occurrence: US)
  Receive Date: 20180712
  Receipt Date: 20180712
  Transmission Date: 20181010
  Serious: Yes (Hospitalization)
  Sender: FDA-Public Use
  Company Number: US-OTSUKA-2018_016802

PATIENT
  Sex: Male

DRUGS (3)
  1. ABILIFY [Suspect]
     Active Substance: ARIPIPRAZOLE
     Indication: MAJOR DEPRESSION
     Dosage: VARIED BETWEEN 5 AND 10 MG PER DAY
     Route: 065
     Dates: start: 200608, end: 201009
  2. ABILIFY [Suspect]
     Active Substance: ARIPIPRAZOLE
     Indication: ATTENTION DEFICIT/HYPERACTIVITY DISORDER
  3. ABILIFY [Suspect]
     Active Substance: ARIPIPRAZOLE
     Indication: ANXIETY

REACTIONS (9)
  - Anhedonia [Unknown]
  - Product use in unapproved indication [Unknown]
  - Mental disorder [Unknown]
  - Injury [Unknown]
  - Economic problem [Unknown]
  - Obsessive-compulsive disorder [Not Recovered/Not Resolved]
  - Anxiety [Unknown]
  - Divorced [Unknown]
  - Gambling disorder [Not Recovered/Not Resolved]
